FAERS Safety Report 15518394 (Version 2)
Quarter: 2019Q1

REPORT INFORMATION
  Report Type: Report from Study
  Country: US (occurrence: US)
  Receive Date: 20181017
  Receipt Date: 20190311
  Transmission Date: 20190417
  Serious: No
  Sender: FDA-Public Use
  Company Number: US-INCYTE CORPORATION-2018IN009189

PATIENT

DRUGS (3)
  1. CEFDINIR. [Concomitant]
     Active Substance: CEFDINIR
     Indication: PRODUCT USED FOR UNKNOWN INDICATION
     Dosage: UNK
     Route: 065
  2. JAKAFI [Suspect]
     Active Substance: RUXOLITINIB
     Indication: PLATELET COUNT INCREASED
     Dosage: 5 MG, BID
     Route: 048
  3. DOXYCYCLINE. [Concomitant]
     Active Substance: DOXYCYCLINE
     Indication: PRODUCT USED FOR UNKNOWN INDICATION
     Dosage: UNK
     Route: 065

REACTIONS (7)
  - Limb injury [Unknown]
  - Malaise [Unknown]
  - Abdominal pain upper [Unknown]
  - Chromaturia [Unknown]
  - Off label use [Unknown]
  - Fall [Unknown]
  - Onychoclasis [Unknown]

NARRATIVE: CASE EVENT DATE: 20190126
